FAERS Safety Report 6291453-5 (Version None)
Quarter: 2009Q3

REPORT INFORMATION
  Report Type: 
  Country: None (occurrence: None)
  Receive Date: 20090730
  Receipt Date: 20090721
  Transmission Date: 20100115
  Serious: Yes (Hospitalization)
  Sender: FDA-Public Use
  Company Number: FR-ASTRAZENECA-2009SE05344

PATIENT
  Age: 31824 Day
  Sex: Female

DRUGS (3)
  1. NEXIUM [Suspect]
     Indication: HIATUS HERNIA
     Route: 048
     Dates: start: 20090313, end: 20090325
  2. NEXIUM [Suspect]
     Route: 048
     Dates: start: 20090326, end: 20090406
  3. ATHYMIL [Suspect]
     Indication: DEPRESSION
     Route: 048
     Dates: start: 20090321, end: 20090409

REACTIONS (1)
  - TOXIC SKIN ERUPTION [None]
